FAERS Safety Report 17075437 (Version 2)
Quarter: 2020Q1

REPORT INFORMATION
  Report Type: Not Available
  Country: US (occurrence: US)
  Receive Date: 20191126
  Receipt Date: 20200101
  Transmission Date: 20200409
  Serious: No
  Sender: FDA-Public Use
  Company Number: US-NEUROCRINE BIOSCIENCES INC.-2019NBI03479

PATIENT
  Sex: Female

DRUGS (1)
  1. INGREZZA [Suspect]
     Active Substance: VALBENAZINE
     Indication: TARDIVE DYSKINESIA
     Route: 048
     Dates: start: 20190515, end: 20191204

REACTIONS (4)
  - Dyskinesia [Unknown]
  - Drooling [Not Recovered/Not Resolved]
  - Bruxism [Unknown]
  - Lacrimation increased [Unknown]

NARRATIVE: CASE EVENT DATE: 2019
